FAERS Safety Report 5702301-3 (Version None)
Quarter: 2008Q2

REPORT INFORMATION
  Report Type: 
  Country: None (occurrence: None)
  Receive Date: 20080411
  Receipt Date: 20080402
  Transmission Date: 20081010
  Serious: Yes (Other)
  Sender: FDA-Public Use
  Company Number: BR-ABBOTT-08P-020-0446126-00

PATIENT
  Age: 39 Year
  Sex: Female
  Weight: 72 kg

DRUGS (3)
  1. SYNTHROID [Suspect]
     Indication: HYPOTHYROIDISM
     Route: 048
     Dates: start: 20070901, end: 20071201
  2. SYNTHROID [Suspect]
     Route: 048
     Dates: start: 20071201
  3. SYNTHROID [Suspect]
     Route: 048
     Dates: start: 20070901, end: 20071201

REACTIONS (1)
  - MIGRAINE [None]
